FAERS Safety Report 5940253-1 (Version None)
Quarter: 2008Q4

REPORT INFORMATION
  Report Type: 
  Country: None (occurrence: None)
  Receive Date: 20081104
  Receipt Date: 20081028
  Transmission Date: 20090506
  Serious: Yes (Other)
  Sender: FDA-Public Use
  Company Number: US-AMGEN-QUU312330

PATIENT
  Sex: Male
  Weight: 74.5 kg

DRUGS (20)
  1. ENBREL [Suspect]
     Indication: RHEUMATOID ARTHRITIS
     Route: 058
     Dates: start: 20060101
  2. ARAVA [Concomitant]
  3. PREDNISONE TAB [Concomitant]
  4. FOLIC ACID [Concomitant]
  5. NAPROXEN [Concomitant]
  6. ACIPHEX [Concomitant]
     Dates: end: 20080101
  7. ALFUZOSIN HCL [Concomitant]
     Dates: end: 20070101
  8. VITAMIN B COMPLEX CAP [Concomitant]
  9. ASCORBIC ACID [Concomitant]
  10. CALCIUM [Concomitant]
  11. LOVAZA [Concomitant]
  12. VITAMIN E [Concomitant]
  13. MULTI-VITAMINS [Concomitant]
  14. GINGKO BILOBA [Concomitant]
     Dates: end: 20080101
  15. FINASTERIDE [Concomitant]
     Dates: start: 20070101
  16. NORVASC [Concomitant]
     Dates: start: 20070101
  17. HYDROCHLOROTHIAZIDE [Concomitant]
     Dates: start: 20070101
  18. TROSPIUM CHLORIDE [Concomitant]
     Dates: start: 20070101, end: 20080101
  19. PROTONIX [Concomitant]
     Dates: start: 20080101
  20. BONIVA [Concomitant]

REACTIONS (5)
  - BURSITIS [None]
  - DYSPNOEA [None]
  - FATIGUE [None]
  - HERPES ZOSTER [None]
  - PULMONARY FIBROSIS [None]
